FAERS Safety Report 8520097-7 (Version None)
Quarter: 2012Q3

REPORT INFORMATION
  Report Type: 
  Country: None (occurrence: None)
  Receive Date: 20120719
  Receipt Date: 20120712
  Transmission Date: 20120928
  Serious: Yes (Hospitalization, Other)
  Sender: FDA-Public Use
  Company Number: IT-GENZYME-CAMP-1002295

PATIENT
  Sex: Male

DRUGS (14)
  1. CYCLOPHOSPHAMIDE [Suspect]
     Indication: CHRONIC LYMPHOCYTIC LEUKAEMIA
     Dosage: 285 MG, QD
     Route: 042
     Dates: start: 20120109, end: 20120111
  2. RED BLOOD CELLS [Concomitant]
     Dosage: 1 U, ONCE
     Route: 065
     Dates: start: 20120117, end: 20120117
  3. OMEPRAZOLE SODIUM [Concomitant]
     Indication: PRODUCT USED FOR UNKNOWN INDICATION
     Dosage: UNK
     Route: 048
  4. RED BLOOD CELLS [Concomitant]
     Indication: PRODUCT USED FOR UNKNOWN INDICATION
     Dosage: 2 U, ONCE
     Route: 065
     Dates: start: 20120111, end: 20120111
  5. MABCAMPATH [Suspect]
     Indication: CHRONIC LYMPHOCYTIC LEUKAEMIA
     Dosage: 20 MG, QD
     Route: 058
     Dates: start: 20120109, end: 20120111
  6. FLUDARABINE PHOSPHATE [Suspect]
     Indication: CHRONIC LYMPHOCYTIC LEUKAEMIA
     Dosage: 38 MG, QD
     Route: 042
     Dates: start: 20120109, end: 20120111
  7. IDROPLURIVIT [Concomitant]
     Indication: PRODUCT USED FOR UNKNOWN INDICATION
     Dosage: 1 DF, UNK
     Route: 048
  8. DECADRON [Concomitant]
     Indication: PROPHYLAXIS
     Dosage: 40 MG, QD
     Route: 042
     Dates: start: 20120117, end: 20120120
  9. FOLINA [Concomitant]
     Indication: PRODUCT USED FOR UNKNOWN INDICATION
     Dosage: 5 MG, UNK
     Route: 048
  10. LEVOFLOXACIN [Concomitant]
     Indication: PRODUCT USED FOR UNKNOWN INDICATION
     Dosage: 500 MG, UNK
     Route: 048
  11. DEXAMETHASONE SODIUM PHOSPHATE [Concomitant]
     Indication: PROPHYLAXIS
     Dosage: 40 MG, QD
     Route: 030
     Dates: start: 20120118, end: 20120120
  12. FLECAINIDE ACETATE [Concomitant]
     Indication: ATRIAL FIBRILLATION
     Dosage: 60 MG, UNK
     Route: 048
  13. ACYCLOVIR [Concomitant]
     Indication: PRODUCT USED FOR UNKNOWN INDICATION
     Dosage: 800 MG, UNK
     Route: 048
     Dates: start: 20120111, end: 20120122
  14. FILGRASTIM [Concomitant]
     Indication: PRODUCT USED FOR UNKNOWN INDICATION
     Dosage: 1 DF, UNK
     Route: 058
     Dates: start: 20120117, end: 20120120

REACTIONS (4)
  - ATRIAL FIBRILLATION [None]
  - OESOPHAGEAL CANDIDIASIS [None]
  - ABDOMINAL PAIN UPPER [None]
  - CYTOMEGALOVIRUS INFECTION [None]
